FAERS Safety Report 18010495 (Version 1)
Quarter: 2020Q3

REPORT INFORMATION
  Report Type: Spontaneous
  Country: US (occurrence: US)
  Receive Date: 20200711
  Receipt Date: 20200711
  Transmission Date: 20201103
  Serious: No
  Sender: FDA-Public Use
  Company Number: US-JNJFOC-20200703638

PATIENT
  Age: 64 Year
  Sex: Female
  Weight: 59.93 kg

DRUGS (4)
  1. TURMERIC                           /01079602/ [Concomitant]
     Active Substance: HERBALS\TURMERIC
     Indication: NUTRITIONAL SUPPLEMENTATION
     Route: 048
     Dates: end: 20200527
  2. PEPCID [Suspect]
     Active Substance: FAMOTIDINE
     Indication: ANTACID THERAPY
     Route: 048
     Dates: end: 20200527
  3. SOLGAR VITAMIN B COMPLEX [Concomitant]
     Indication: NUTRITIONAL SUPPLEMENTATION
     Route: 060
     Dates: start: 202005, end: 20200527
  4. SILVER [Concomitant]
     Active Substance: SILVER
     Indication: NUTRITIONAL SUPPLEMENTATION
     Route: 060
     Dates: end: 20200527

REACTIONS (4)
  - Swollen tongue [Recovering/Resolving]
  - Throat tightness [Recovering/Resolving]
  - Burning mouth syndrome [Recovering/Resolving]
  - Hypersensitivity [Recovering/Resolving]

NARRATIVE: CASE EVENT DATE: 202005
